FAERS Safety Report 8359511-9 (Version None)
Quarter: 2012Q2

REPORT INFORMATION
  Report Type: 
  Country: None (occurrence: None)
  Receive Date: 20120515
  Receipt Date: 20120508
  Transmission Date: 20120825
  Serious: Yes (Other)
  Sender: FDA-Public Use
  Company Number: JP-ACCORD-008741

PATIENT
  Age: 58 Year
  Sex: Male

DRUGS (3)
  1. OXALIPLATIN [Suspect]
     Indication: RENAL CANCER RECURRENT
  2. FLUOROURACIL [Suspect]
     Indication: RENAL CANCER RECURRENT
  3. LEUCOVORIN CALCIUM [Concomitant]
     Indication: RENAL CANCER RECURRENT

REACTIONS (1)
  - TREATMENT FAILURE [None]
